FAERS Safety Report 15772178 (Version 1)
Quarter: 2018Q4

REPORT INFORMATION
  Report Type: Spontaneous
  Country: CA (occurrence: CA)
  Receive Date: 20181228
  Receipt Date: 20181228
  Transmission Date: 20190205
  Serious: Yes (Other)
  Sender: FDA-Public Use
  Company Number: CA-009507513-1812CAN012264

PATIENT
  Age: 78 Year
  Sex: Male

DRUGS (3)
  1. DESLORATADINE (+) PSEUDOEPHEDRINE SULFATE [Suspect]
     Active Substance: DESLORATADINE\PSEUDOEPHEDRINE SULFATE
     Indication: PRURITUS
     Dosage: 5 MG
     Route: 065
  2. REMICADE [Suspect]
     Active Substance: INFLIXIMAB
     Indication: ANKYLOSING SPONDYLITIS
     Dosage: 250 MG, Q4WK
     Route: 042
  3. REMICADE [Suspect]
     Active Substance: INFLIXIMAB
     Dosage: 400 MG, Q8WK
     Route: 042

REACTIONS (7)
  - Product use issue [Unknown]
  - Urticaria [Unknown]
  - Adverse drug reaction [Unknown]
  - Pneumonia [Unknown]
  - Infusion related reaction [Unknown]
  - Off label use [Unknown]
  - Pain [Unknown]
